FAERS Safety Report 10183071 (Version 1)
Quarter: 2014Q2

REPORT INFORMATION
  Report Type: Spontaneous
  Country: US (occurrence: US)
  Receive Date: 20140520
  Receipt Date: 20140520
  Transmission Date: 20141212
  Serious: No
  Sender: FDA-Public Use
  Company Number: US-BAYER-2014-065884

PATIENT
  Age: 85 Year
  Sex: Female

DRUGS (3)
  1. CIPROFLOXACIN [Suspect]
     Route: 048
  2. AZITHROMYCIN [Suspect]
     Route: 048
  3. LINEZOLID [Suspect]
     Route: 048

REACTIONS (3)
  - Drug intolerance [None]
  - Nausea [None]
  - Vomiting [None]
